FAERS Safety Report 4275438-6 (Version None)
Quarter: 2004Q1

REPORT INFORMATION
  Report Type: 
  Country: None (occurrence: None)
  Receive Date: 20040116
  Receipt Date: 20040109
  Transmission Date: 20041129
  Serious: Yes (Other)
  Sender: FDA-Public Use
  Company Number: US-JNJFOC-20031005891

PATIENT
  Age: 50 Year
  Sex: Female

DRUGS (7)
  1. DURAGESIC [Suspect]
     Indication: PAIN
     Dosage: 25 UG/HR, 1 IN 72 HOUR, TRANSDERMAL
     Route: 062
     Dates: start: 20031022, end: 20031023
  2. TOPAMAX [Concomitant]
  3. ANTIDEPRESSANT (ANTIDEPRESSANT) [Concomitant]
  4. ZANTAC [Concomitant]
  5. NEXIUM [Concomitant]
  6. MOTRIN [Concomitant]
  7. SERZONE [Concomitant]

REACTIONS (12)
  - CRYING [None]
  - DISORIENTATION [None]
  - DIZZINESS [None]
  - DRY MOUTH [None]
  - DYSPNOEA EXERTIONAL [None]
  - FEELING ABNORMAL [None]
  - HALLUCINATION [None]
  - NAUSEA [None]
  - NERVOUSNESS [None]
  - PARANOIA [None]
  - PRURITUS GENERALISED [None]
  - PSYCHOTIC DISORDER [None]
